FAERS Safety Report 6976944-3 (Version None)
Quarter: 2010Q3

REPORT INFORMATION
  Report Type: 
  Country: None (occurrence: None)
  Receive Date: 20100910
  Receipt Date: 20090430
  Transmission Date: 20110219
  Serious: No
  Sender: FDA-Public Use
  Company Number: US-WYE-H09177009

PATIENT
  Age: 40 Year
  Sex: Female

DRUGS (3)
  1. PRISTIQ [Suspect]
     Indication: DEPRESSION
     Route: 048
     Dates: start: 20080901, end: 20090401
  2. PRISTIQ [Suspect]
     Indication: ANXIETY
     Dosage: ^OVER THE PAST WEEK SHE TOOK EITHER 1/2 A PILL OR NO PILL EACH DAY
     Route: 048
     Dates: start: 20090401, end: 20090428
  3. ZYRTEC [Concomitant]

REACTIONS (10)
  - BODY TEMPERATURE DECREASED [None]
  - CHILLS [None]
  - DECREASED APPETITE [None]
  - DIARRHOEA [None]
  - DIZZINESS [None]
  - DRUG WITHDRAWAL SYNDROME [None]
  - FEELING OF BODY TEMPERATURE CHANGE [None]
  - NAUSEA [None]
  - PHOTOSENSITIVITY REACTION [None]
  - RASH PRURITIC [None]
